FAERS Safety Report 8342964-X (Version None)
Quarter: 2012Q2

REPORT INFORMATION
  Report Type: 
  Country: None (occurrence: None)
  Receive Date: 20120504
  Receipt Date: 20120504
  Transmission Date: 20120825
  Serious: Yes (Hospitalization)
  Sender: FDA-Public Use
  Company Number: None

PATIENT
  Age: 42 Year
  Sex: Male
  Weight: 119.296 kg

DRUGS (10)
  1. FOLFIRI (5FU2400MG/M2;IRIN150MG/M2; LEUC400MG(M2) [Suspect]
     Indication: COLON CANCER
     Dosage: IV Q 2 WEEKS
     Route: 042
     Dates: start: 20120416, end: 20120418
  2. VELIPARIB [Suspect]
     Dosage: 270 MG BID PO D 15-19
     Route: 048
     Dates: start: 20120416, end: 20120418
  3. LORTAB [Concomitant]
  4. LOMOTIL [Concomitant]
  5. LASIX [Concomitant]
  6. METOPROLOL TARTRATE [Concomitant]
  7. PHENERGAN [Concomitant]
  8. PHENAZOPYRIDINE HCL TAB [Concomitant]
  9. WARFARIN SODIUM [Concomitant]
  10. MAGNESIUM CITRATE [Concomitant]

REACTIONS (4)
  - NAUSEA [None]
  - IRRITABLE BOWEL SYNDROME [None]
  - DEHYDRATION [None]
  - VOMITING [None]
